FAERS Safety Report 8473128-7 (Version None)
Quarter: 2012Q2

REPORT INFORMATION
  Report Type: 
  Country: None (occurrence: None)
  Receive Date: 20120627
  Receipt Date: 20120621
  Transmission Date: 20120825
  Serious: Yes (Other)
  Sender: FDA-Public Use
  Company Number: US-PFIZER INC-2012129043

PATIENT
  Sex: Female
  Weight: 72.562 kg

DRUGS (9)
  1. PRISTIQ [Suspect]
     Indication: DEPRESSION
     Dosage: 100 MG, DAILY
     Route: 048
     Dates: end: 20120529
  2. TOPAMAX [Concomitant]
     Dosage: 150 MG, UNK
  3. KLONOPIN [Suspect]
     Indication: SLEEP DISORDER
     Dosage: 1 MG IN THE MORNING AND 3 MG AT NIGHT
  4. DESIPRAMINE [Concomitant]
     Dosage: UNK
  5. LAMICTAL [Suspect]
     Dosage: UNK
  6. TOPAMAX [Concomitant]
     Indication: MIGRAINE
     Dosage: 50 MG, UNK
  7. SEROQUEL [Concomitant]
     Dosage: UNK
  8. AMBIEN [Suspect]
     Indication: SLEEP DISORDER
     Dosage: 12.5 MG, DAILY
  9. SIMVASTATIN [Concomitant]
     Indication: BLOOD CHOLESTEROL ABNORMAL
     Dosage: 20 MG, DAILY

REACTIONS (10)
  - DRUG INEFFECTIVE [None]
  - HEADACHE [None]
  - LIBIDO DECREASED [None]
  - SOCIAL AVOIDANT BEHAVIOUR [None]
  - INSOMNIA [None]
  - CRYING [None]
  - MANIA [None]
  - FEELING ABNORMAL [None]
  - FEMALE ORGASMIC DISORDER [None]
  - BIPOLAR DISORDER [None]
